FAERS Safety Report 22181665 (Version 1)
Quarter: 2023Q2

REPORT INFORMATION
  Report Type: Spontaneous
  Country: GB (occurrence: GB)
  Receive Date: 20230406
  Receipt Date: 20230406
  Transmission Date: 20230722
  Serious: Yes (Disabling, Other)
  Sender: FDA-Public Use
  Company Number: None

PATIENT
  Age: 29 Year
  Sex: Female
  Weight: 80 kg

DRUGS (7)
  1. ARIPIPRAZOLE [Suspect]
     Active Substance: ARIPIPRAZOLE
     Indication: Obsessive-compulsive disorder
     Dosage: 15 MG ONCE A DAY
     Route: 065
     Dates: start: 20170401, end: 20220315
  2. DIAZEPAM [Concomitant]
     Active Substance: DIAZEPAM
     Indication: Obsessive-compulsive disorder
     Dosage: UNKNOWN
     Route: 065
  3. FLUOXETINE [Concomitant]
     Active Substance: FLUOXETINE HYDROCHLORIDE
     Indication: Obsessive-compulsive disorder
     Dosage: UNKNOWN
     Route: 065
     Dates: start: 20180801, end: 20211201
  4. LORAZEPAM [Concomitant]
     Active Substance: LORAZEPAM
     Indication: Obsessive-compulsive disorder
     Dosage: UNKNOWN
     Route: 065
  5. MIRTAZAPINE [Concomitant]
     Active Substance: MIRTAZAPINE
     Indication: Obsessive-compulsive disorder
     Dosage: UNKNOWN
     Route: 065
  6. SERTRALINE [Concomitant]
     Active Substance: SERTRALINE HYDROCHLORIDE
     Indication: Perinatal depression
     Dosage: UNKNOWN
     Route: 065
     Dates: start: 20161128, end: 20180801
  7. ZOPICLONE [Concomitant]
     Active Substance: ZOPICLONE
     Indication: Obsessive-compulsive disorder
     Dosage: UNKNOWN
     Route: 065

REACTIONS (5)
  - Compulsive shopping [Recovered/Resolved with Sequelae]
  - Binge eating [Recovering/Resolving]
  - High risk sexual behaviour [Recovered/Resolved with Sequelae]
  - Obesity [Unknown]
  - Flashback [Unknown]

NARRATIVE: CASE EVENT DATE: 20170401
